FAERS Safety Report 12371577 (Version 1)
Quarter: 2016Q2

REPORT INFORMATION
  Report Type: Spontaneous
  Country: US (occurrence: US)
  Receive Date: 20160516
  Receipt Date: 20160516
  Transmission Date: 20160815
  Serious: No
  Sender: FDA-Public Use
  Company Number: US-ELI_LILLY_AND_COMPANY-US201605001172

PATIENT
  Age: 44 Year
  Sex: Female
  Weight: 96.15 kg

DRUGS (2)
  1. ADCIRCA [Suspect]
     Active Substance: TADALAFIL
     Indication: PRODUCT USED FOR UNKNOWN INDICATION
     Dosage: UNK
  2. ORENITRAM [Suspect]
     Active Substance: TREPROSTINIL
     Indication: PULMONARY HYPERTENSION
     Dosage: 1 MG, TID
     Route: 048
     Dates: start: 20160329

REACTIONS (5)
  - Malaise [Unknown]
  - Fatigue [Unknown]
  - Rash [Unknown]
  - Feeling of body temperature change [Unknown]
  - Asthenia [Unknown]

NARRATIVE: CASE EVENT DATE: 201604
